FAERS Safety Report 5363561-4 (Version None)
Quarter: 2007Q2

REPORT INFORMATION
  Report Type: 
  Country: None (occurrence: None)
  Receive Date: 20070618
  Receipt Date: 20070618
  Transmission Date: 20071010
  Serious: No
  Sender: FDA-Public Use
  Company Number: None

PATIENT
  Sex: Male
  Weight: 105 kg

DRUGS (2)
  1. MYCAMINE [Suspect]
     Indication: EVIDENCE BASED TREATMENT
     Dosage: 150 MG Q24HR IV
     Route: 042
     Dates: start: 20060926, end: 20060929
  2. MYCAMINE [Suspect]
     Indication: FUNGAL INFECTION
     Dosage: 150 MG Q24HR IV
     Route: 042
     Dates: start: 20060926, end: 20060929

REACTIONS (5)
  - ASPARTATE AMINOTRANSFERASE INCREASED [None]
  - LARGE INTESTINE PERFORATION [None]
  - LIVER DISORDER [None]
  - PERITONITIS [None]
  - SEPTIC SHOCK [None]
